FAERS Safety Report 6342330-2 (Version None)
Quarter: 2009Q3

REPORT INFORMATION
  Report Type: 
  Country: None (occurrence: None)
  Receive Date: 20090907
  Receipt Date: 20090824
  Transmission Date: 20100115
  Serious: Yes (Hospitalization, Other)
  Sender: FDA-Public Use
  Company Number: BR-ELI_LILLY_AND_COMPANY-BR200908002273

PATIENT
  Sex: Male

DRUGS (6)
  1. FORTEO [Suspect]
     Indication: BONE DISORDER
     Dosage: 20 UG, DAILY (1/D)
     Route: 058
     Dates: start: 20080101
  2. OXYGEN [Concomitant]
     Dosage: UNK, UNKNOWN
     Route: 065
  3. DILTIAZEM [Concomitant]
     Dosage: UNK, UNKNOWN
     Route: 065
  4. MOTILIUM [Concomitant]
     Dosage: UNK, UNKNOWN
     Route: 065
  5. LACTULOSE [Concomitant]
     Dosage: UNK, UNKNOWN
     Route: 065
  6. CELEBRA [Concomitant]
     Dosage: UNK, UNKNOWN
     Route: 065

REACTIONS (8)
  - DEHYDRATION [None]
  - DIARRHOEA [None]
  - DIZZINESS [None]
  - PAIN [None]
  - SYNCOPE [None]
  - URINE COLOUR ABNORMAL [None]
  - VISUAL IMPAIRMENT [None]
  - VOMITING [None]
